FAERS Safety Report 7308501-3 (Version None)
Quarter: 2011Q1

REPORT INFORMATION
  Report Type: 
  Country: None (occurrence: None)
  Receive Date: 20110223
  Receipt Date: 20101223
  Transmission Date: 20110831
  Serious: Yes (Hospitalization, Other)
  Sender: FDA-Public Use
  Company Number: US-BAYER-201016614NA

PATIENT
  Sex: Female
  Weight: 127 kg

DRUGS (10)
  1. PREVACID [Concomitant]
     Dosage: UNK
     Dates: start: 20080101
  2. CITALOPRAM [Concomitant]
     Dosage: UNK
     Dates: start: 20080201
  3. NYQUIL [Concomitant]
     Indication: COUGH
     Dosage: UNK
     Dates: start: 20071215, end: 20071217
  4. BUSPIRONE [Concomitant]
     Dosage: UNK
     Dates: start: 20080201
  5. YAZ [Suspect]
     Indication: PRODUCT USED FOR UNKNOWN INDICATION
     Route: 048
     Dates: start: 20071001, end: 20071201
  6. UNCODEABLE ^UNCLASSIFIABLE^ [Concomitant]
     Dosage: UNK
     Dates: start: 20080101
  7. ALBUTEROL [Concomitant]
  8. SPIRIVA [Concomitant]
     Dosage: UNK
     Dates: start: 20080101, end: 20080401
  9. UNCODEABLE ^UNCLASSIFIABLE^ [Concomitant]
     Dosage: UNK
     Dates: start: 20100101
  10. YASMIN [Suspect]
     Indication: ORAL CONTRACEPTION
     Route: 048
     Dates: start: 20071001, end: 20071201

REACTIONS (7)
  - RENAL FAILURE [None]
  - RESPIRATORY FAILURE [None]
  - DEPRESSION [None]
  - PULMONARY EMBOLISM [None]
  - TRACHEAL STENOSIS [None]
  - ANXIETY [None]
  - PNEUMONIA [None]
